FAERS Safety Report 5488953-4 (Version None)
Quarter: 2007Q4

REPORT INFORMATION
  Report Type: 
  Country: None (occurrence: None)
  Receive Date: 20071016
  Receipt Date: 20071001
  Transmission Date: 20080405
  Serious: Yes (Hospitalization)
  Sender: FDA-Public Use
  Company Number: 6038469

PATIENT
  Age: 88 Year
  Sex: Male

DRUGS (5)
  1. ADANCOR 20 MG (20 MG, TABLET) (NICORANDIL) [Suspect]
     Indication: ANGINA PECTORIS
     Dosage: 40 MG (20 MG, 2 IN 1 D); LONG-TERM
     Route: 048
  2. FUROSEMIDE [Suspect]
     Indication: HYPERTENSION
     Dosage: 20 MG (20 MG, 1 D); LONG TERM
     Route: 048
  3. RAMIPRIL [Suspect]
     Indication: HYPERTENSION
     Dosage: 5 MG (5 MG, 1 D); LONG-TERM
     Route: 048
  4. PRAVASTATIN [Suspect]
     Indication: HYPERCHOLESTEROLAEMIA
     Dosage: 20 MG (20 MG, 1D); LONG-TERM
     Route: 048
  5. PREVISCAN *FLUINDIONE) [Suspect]
     Indication: ATRIAL FIBRILLATION
     Dosage: 5 MG AND 10 MG IN TURNS (1 D); LONG-TERM
     Route: 048

REACTIONS (7)
  - ANAEMIA MACROCYTIC [None]
  - BLOOD IRON DECREASED [None]
  - ERYTHEMA MULTIFORME [None]
  - LYMPHOPENIA [None]
  - ORAL HERPES [None]
  - THROMBOCYTOPENIA [None]
  - TOXIC SKIN ERUPTION [None]
